FAERS Safety Report 7124610-6 (Version None)
Quarter: 2010Q4

REPORT INFORMATION
  Report Type: 
  Country: None (occurrence: None)
  Receive Date: 20101129
  Receipt Date: 20101119
  Transmission Date: 20110411
  Serious: Yes (Death)
  Sender: FDA-Public Use
  Company Number: US-CELGENEUS-163-21880-10102269

PATIENT
  Sex: Male

DRUGS (6)
  1. REVLIMID [Suspect]
     Indication: MULTIPLE MYELOMA
     Route: 048
     Dates: start: 20100224
  2. REVLIMID [Suspect]
     Route: 048
     Dates: start: 20100801, end: 20100910
  3. TREANDA [Concomitant]
     Indication: CHEMOTHERAPY
     Route: 051
     Dates: start: 20100914
  4. AREDIA [Concomitant]
     Route: 065
     Dates: start: 20100831
  5. CALCITONIN [Concomitant]
     Indication: HYPERCALCAEMIA
     Route: 061
  6. PREDNISONE [Concomitant]
     Route: 065

REACTIONS (2)
  - CARDIAC ARREST [None]
  - MULTIPLE MYELOMA [None]
